FAERS Safety Report 19447548 (Version 1)
Quarter: 2021Q2

REPORT INFORMATION
  Report Type: Spontaneous
  Country: US (occurrence: US)
  Receive Date: 20210621
  Receipt Date: 20210621
  Transmission Date: 20210717
  Serious: Yes (Death)
  Sender: FDA-Public Use
  Company Number: None

PATIENT
  Sex: Female
  Weight: 66.15 kg

DRUGS (6)
  1. NEUPOGEN 480/0.8ML [Concomitant]
  2. ONDANSETRON 4MG/2ML [Concomitant]
  3. DEXAMETHASONE 10MG/ML [Concomitant]
     Active Substance: DEXAMETHASONE SODIUM PHOSPHATE
  4. HALAVEN [Suspect]
     Active Substance: ERIBULIN MESYLATE
     Indication: BREAST CANCER FEMALE
     Dosage: ?          OTHER FREQUENCY:DAYS 1+8 OF21DAY;?
     Route: 042
     Dates: start: 20201007, end: 20210621
  5. XGEVA 120/1.7ML VIAL [Concomitant]
  6. AVASTIN [Suspect]
     Active Substance: BEVACIZUMAB
     Indication: BREAST CANCER FEMALE
     Dosage: ?          OTHER FREQUENCY:Q21D;?
     Route: 042
     Dates: start: 20210514, end: 20210621

REACTIONS (1)
  - Death [None]
